FAERS Safety Report 9503329 (Version 2)
Quarter: 2013Q3

REPORT INFORMATION
  Report Type: Spontaneous
  Country: US (occurrence: None)
  Receive Date: 20130225
  Receipt Date: 20130909
  Transmission Date: 20140515
  Serious: Yes (Other)
  Sender: FDA-Public Use
  Company Number: 369652

PATIENT
  Age: 73 Year
  Sex: Female
  Weight: 85.3 kg

DRUGS (1)
  1. VICTOZA [Suspect]
     Indication: TYPE 2 DIABETES MELLITUS
     Dosage: , SUBCUTANEOUS
     Route: 058
     Dates: start: 20120327, end: 20130123

REACTIONS (1)
  - Pancreatitis [None]
